FAERS Safety Report 8508070-6 (Version None)
Quarter: 2012Q2

REPORT INFORMATION
  Report Type: 
  Country: None (occurrence: None)
  Receive Date: 20120405
  Receipt Date: 20090910
  Transmission Date: 20120825
  Serious: Yes (Other)
  Sender: FDA-Public Use
  Company Number: PHEH2009US10097

PATIENT
  Sex: Female

DRUGS (7)
  1. RECLAST [Suspect]
     Indication: OSTEOPOROSIS
     Dosage: 5 MG ONCE YEARLY, INTRAVENOUS 5 MG, INTRAVENOUS
     Route: 042
     Dates: start: 20080101
  2. RECLAST [Suspect]
     Indication: OSTEOPOROSIS
     Dosage: 5 MG ONCE YEARLY, INTRAVENOUS 5 MG, INTRAVENOUS
     Route: 042
     Dates: start: 20090122
  3. SULFASALAZINE [Concomitant]
  4. CALTRATE 600 + VITAMIN D (CALCIUM CARBONATE, ERGOCALCIFEROL) [Concomitant]
  5. LOVAZA [Concomitant]
  6. MULTI-VITAMINS [Concomitant]
  7. PREDNISONE TAB [Concomitant]

REACTIONS (5)
  - ARTHRITIS [None]
  - OEDEMA PERIPHERAL [None]
  - RED BLOOD CELL SEDIMENTATION RATE INCREASED [None]
  - ARTHRALGIA [None]
  - GAIT DISTURBANCE [None]
